FAERS Safety Report 4485924-1 (Version None)
Quarter: 2004Q4

REPORT INFORMATION
  Report Type: 
  Country: None (occurrence: None)
  Receive Date: 20041026
  Receipt Date: 20041019
  Transmission Date: 20050328
  Serious: Yes (Death)
  Sender: FDA-Public Use
  Company Number: 04-10-1480

PATIENT
  Age: 30 Year
  Sex: Female

DRUGS (1)
  1. FLUOXETINE [Suspect]
     Indication: DEPRESSION
     Dosage: 20 MG BD ORAL
     Route: 048
     Dates: start: 20020114, end: 20020801

REACTIONS (1)
  - COMPLETED SUICIDE [None]
